FAERS Safety Report 10736321 (Version 1)
Quarter: 2015Q1

REPORT INFORMATION
  Report Type: Spontaneous
  Country: US (occurrence: None)
  Receive Date: 20150121
  Receipt Date: 20150121
  Transmission Date: 20150721
  Serious: Yes (Other)
  Sender: FDA-Public Use
  Company Number: 2015SCAL000012

PATIENT
  Age: 27 Year
  Sex: Female

DRUGS (2)
  1. FOLATE (FOLIC ACID) [Concomitant]
  2. LAMOTRIGINE. [Suspect]
     Active Substance: LAMOTRIGINE
     Indication: EPILEPSY

REACTIONS (3)
  - Generalised tonic-clonic seizure [None]
  - Placenta praevia [None]
  - Exposure during pregnancy [None]
